FAERS Safety Report 5531333-3 (Version None)
Quarter: 2007Q4

REPORT INFORMATION
  Report Type: 
  Country: None (occurrence: None)
  Receive Date: 20071201
  Receipt Date: 20071126
  Transmission Date: 20080405
  Serious: Yes (Other)
  Sender: FDA-Public Use
  Company Number: US-ALLERGAN-0713091US

PATIENT
  Sex: Female

DRUGS (16)
  1. RESTASIS [Suspect]
     Indication: DRY EYE
     Dosage: UNK, UNKNOWN
     Route: 047
  2. RESTASIS [Suspect]
     Indication: EYE IRRITATION
  3. RESTASIS [Suspect]
     Indication: FOREIGN BODY SENSATION IN EYES
  4. RESTASIS [Suspect]
     Indication: KERATITIS
  5. ARTIFICIAL TEARS [Suspect]
     Indication: DRY EYE
     Dosage: UNK, BID
     Route: 047
  6. ARTIFICIAL TEARS [Suspect]
     Indication: EYE IRRITATION
  7. ARTIFICIAL TEARS [Suspect]
     Indication: FOREIGN BODY SENSATION IN EYES
  8. ARTIFICIAL TEARS [Suspect]
     Indication: KERATITIS
  9. LUBRICATING OINTMENTS [Suspect]
     Indication: DRY EYE
     Route: 047
  10. LUBRICATING OINTMENTS [Suspect]
     Indication: EYE IRRITATION
  11. LUBRICATING OINTMENTS [Suspect]
     Indication: FOREIGN BODY SENSATION IN EYES
  12. LUBRICATING OINTMENTS [Suspect]
     Indication: KERATITIS
  13. MEDICATED EYEDROPS [Suspect]
     Indication: DRY EYE
     Route: 047
  14. MEDICATED EYEDROPS [Suspect]
     Indication: EYE IRRITATION
  15. MEDICATED EYEDROPS [Suspect]
     Indication: FOREIGN BODY SENSATION IN EYES
  16. MEDICATED EYEDROPS [Suspect]
     Indication: KERATITIS

REACTIONS (2)
  - DRUG INEFFECTIVE [None]
  - KERATITIS [None]
